FAERS Safety Report 4640516-6 (Version None)
Quarter: 2005Q1

REPORT INFORMATION
  Report Type: 
  Country: None (occurrence: None)
  Receive Date: 20050328
  Receipt Date: 20050201
  Transmission Date: 20050727
  Serious: No
  Sender: FDA-Public Use
  Company Number: USA050289601

PATIENT
  Age: 23 Year
  Sex: Male

DRUGS (1)
  1. STRATTERA [Suspect]
     Indication: ATTENTION DEFICIT/HYPERACTIVITY DISORDER
     Dosage: 80 MG DAY
     Dates: start: 20040901

REACTIONS (5)
  - FATIGUE [None]
  - INTERMITTENT EXPLOSIVE DISORDER [None]
  - IRRITABILITY [None]
  - OVERDOSE [None]
  - SLEEP DISORDER [None]
